FAERS Safety Report 16389260 (Version 1)
Quarter: 2019Q2

REPORT INFORMATION
  Report Type: Spontaneous
  Country: CN (occurrence: CN)
  Receive Date: 20190604
  Receipt Date: 20190604
  Transmission Date: 20190711
  Serious: Yes (Other)
  Sender: FDA-Public Use
  Company Number: CN-GILEAD-2019-0411207

PATIENT
  Age: 40 Year
  Sex: Male

DRUGS (1)
  1. VEMLIDY [Suspect]
     Active Substance: TENOFOVIR ALAFENAMIDE FUMARATE
     Indication: HEPATITIS B
     Dosage: 25 MG, QD
     Route: 048
     Dates: start: 201811

REACTIONS (5)
  - Hepatic cirrhosis [Not Recovered/Not Resolved]
  - Epistaxis [Unknown]
  - Nightmare [Unknown]
  - Gingival bleeding [Unknown]
  - Fatigue [Unknown]

NARRATIVE: CASE EVENT DATE: 201903
